FAERS Safety Report 5251333-0 (Version None)
Quarter: 2007Q1

REPORT INFORMATION
  Report Type: 
  Country: None (occurrence: None)
  Receive Date: 20061201
  Receipt Date: 20060801
  Transmission Date: 20070707
  Serious: No
  Sender: FDA-Public Use
  Company Number: 2006PV018602

PATIENT
  Age: 46 Year
  Sex: Female

DRUGS (6)
  1. BYETTA [Suspect]
     Indication: DRUG USE FOR UNKNOWN INDICATION
     Dosage: SEE IMAGE
     Route: 058
     Dates: start: 20050801, end: 20050901
  2. BYETTA [Suspect]
     Indication: DRUG USE FOR UNKNOWN INDICATION
     Dosage: SEE IMAGE
     Route: 058
     Dates: start: 20050901, end: 20050901
  3. BYETTA [Suspect]
     Indication: DRUG USE FOR UNKNOWN INDICATION
     Dosage: SEE IMAGE
     Route: 058
     Dates: start: 20051001, end: 20060301
  4. BYETTA [Suspect]
     Indication: DRUG USE FOR UNKNOWN INDICATION
     Dosage: SEE IMAGE
     Route: 058
     Dates: start: 20060401
  5. METFORMIN HCL [Concomitant]
  6. VICODIN [Concomitant]

REACTIONS (8)
  - BLOOD GLUCOSE INCREASED [None]
  - DECREASED APPETITE [None]
  - DEPRESSION [None]
  - DIVERTICULUM [None]
  - DRUG INEFFECTIVE [None]
  - NAUSEA [None]
  - NEPHROLITHIASIS [None]
  - RENAL COLIC [None]
